FAERS Safety Report 7200255 (Version 16)
Quarter: 2013Q4

REPORT INFORMATION
  Report Type: Spontaneous
  Country: US (occurrence: US)
  Receive Date: 20091204
  Receipt Date: 20131213
  Transmission Date: 20140711
  Serious: Yes (Death, Hospitalization, Other)
  Sender: FDA-Public Use
  Company Number: PHEH2009US16957

PATIENT
  Age: 34 Year
  Sex: Female

DRUGS (36)
  1. ZOMETA [Suspect]
     Dosage: 4 MG,
     Route: 042
  2. SOLU-MEDROL [Concomitant]
     Route: 042
  3. PULMICORT [Concomitant]
  4. OXYCONTIN [Concomitant]
     Dosage: 80 MG, TID
     Route: 048
  5. DIFLUCAN [Concomitant]
     Dosage: 100 MG, QD
     Route: 048
  6. SENNA-S (DOCUSATE SODIUM/SENNA ALEXANDRINA) [Concomitant]
  7. PEPCID [Concomitant]
     Dosage: 20 MG, DAILY
     Route: 048
  8. METHADONE [Concomitant]
     Dosage: 40 MG, BID
     Route: 048
  9. DILAUDID [Concomitant]
     Route: 048
  10. DEXAMETHASONE [Concomitant]
     Route: 048
  11. ZEGERID [Concomitant]
  12. MIRALAX [Concomitant]
     Dosage: 17 G, DAILY
     Route: 048
  13. DECADRON [Concomitant]
  14. PROTONIX [Concomitant]
     Dosage: 40 MG, QD
     Route: 042
  15. DULCOLAX [Concomitant]
     Dosage: 10 MG, QHS
     Route: 048
  16. HYTRIN [Concomitant]
     Dosage: 1 MG, Q12H
     Route: 048
  17. AMBIEN [Concomitant]
     Dosage: 10 MG, QHS
     Route: 048
  18. LORAZEPAM [Concomitant]
     Dosage: 1 MG, QHS
     Route: 048
  19. GABAPENTIN [Concomitant]
     Route: 048
  20. KCL [Concomitant]
     Dosage: 10 MEQ, DAILY
     Route: 048
  21. CELEBREX [Concomitant]
     Dosage: 200 MG, DAILY
     Route: 048
  22. ADVIL [Concomitant]
  23. KYTRIL [Concomitant]
     Dosage: 1 MG, Q12H
  24. ENOXAPARIN [Concomitant]
     Dosage: 0.4 ML, DAILY
     Route: 058
  25. BENZONATATE [Concomitant]
     Dosage: 20 MG, DAILY
  26. SENOKOT [Concomitant]
  27. CHLORHEXIDINE [Concomitant]
     Route: 061
  28. IPRATROPIUM [Concomitant]
  29. ZOLPIDEM [Concomitant]
     Dosage: 10 MG, QHS
     Route: 048
  30. PIPERACILLIN SODIUM W/TAZOBACTAM SODIUM [Concomitant]
  31. METHYLPREDNISOLONE [Concomitant]
  32. OXALIPLATIN [Concomitant]
  33. PENICILLIN VK [Concomitant]
     Dosage: 500 MG, QID
  34. LEUCOVORIN [Concomitant]
  35. AVASTIN [Concomitant]
  36. TAXOL [Concomitant]

REACTIONS (105)
  - Death [Fatal]
  - General physical health deterioration [Unknown]
  - Osteonecrosis of jaw [Unknown]
  - Pain [Unknown]
  - Anhedonia [Unknown]
  - Anxiety [Unknown]
  - Pneumonia [Unknown]
  - Hyperthermia [Unknown]
  - Drug hypersensitivity [Unknown]
  - Dyspnoea [Not Recovered/Not Resolved]
  - Acute respiratory failure [Unknown]
  - Thrombocytopenia [Unknown]
  - Embolism venous [Unknown]
  - Pleural effusion [Unknown]
  - Deep vein thrombosis [Unknown]
  - Oedema peripheral [Recovering/Resolving]
  - Pneumothorax [Unknown]
  - Non-small cell lung cancer stage IV [Unknown]
  - Metastases to bone [Unknown]
  - Musculoskeletal chest pain [Unknown]
  - Back pain [Unknown]
  - Bone cancer [Unknown]
  - Metastases to pleura [Unknown]
  - Atelectasis [Unknown]
  - Anaemia of malignant disease [Unknown]
  - Obesity [Unknown]
  - Gastrooesophageal reflux disease [Unknown]
  - Tobacco abuse [Unknown]
  - Sinus tachycardia [Unknown]
  - Left ventricular hypertrophy [Unknown]
  - Productive cough [Unknown]
  - Myopathy [Unknown]
  - Headache [Unknown]
  - Pyrexia [Unknown]
  - Constipation [Unknown]
  - Hyponatraemia [Unknown]
  - Hypokalaemia [Unknown]
  - Respiratory distress [Unknown]
  - Vision blurred [Unknown]
  - Bronchitis [Unknown]
  - Wheezing [Unknown]
  - Hip fracture [Unknown]
  - Decreased appetite [Unknown]
  - Micturition frequency decreased [Unknown]
  - Fatigue [Unknown]
  - Nausea [Unknown]
  - Abdominal pain [Unknown]
  - Abdominal distension [Unknown]
  - Asthenia [Unknown]
  - Musculoskeletal pain [Unknown]
  - Eczema [Unknown]
  - Parapsoriasis [Unknown]
  - Hypertriglyceridaemia [Unknown]
  - Breast pain [Unknown]
  - Osteosclerosis [Unknown]
  - Ileus [Unknown]
  - Hypoaesthesia [Unknown]
  - Paraesthesia [Unknown]
  - Peripheral sensory neuropathy [Unknown]
  - Metastases to adrenals [Unknown]
  - Palmar-plantar erythrodysaesthesia syndrome [Unknown]
  - Gastritis [Unknown]
  - Metastases to liver [Unknown]
  - Metastases to lymph nodes [Unknown]
  - Bone pain [Unknown]
  - Hepatic steatosis [Unknown]
  - Colon cancer [Unknown]
  - Second primary malignancy [Unknown]
  - Dyspepsia [Unknown]
  - Cerebellar infarction [Unknown]
  - Central nervous system lesion [Unknown]
  - Exposed bone in jaw [Unknown]
  - Osteomyelitis [Unknown]
  - Wound dehiscence [Unknown]
  - Dyskinesia [Unknown]
  - Fall [Unknown]
  - Breast cancer metastatic [Unknown]
  - Colon cancer metastatic [Unknown]
  - Lung cancer metastatic [Unknown]
  - Epistaxis [Unknown]
  - Pulmonary fibrosis [Unknown]
  - Splenic lesion [Unknown]
  - Alopecia [Unknown]
  - Migraine [Unknown]
  - Hyperlipidaemia [Unknown]
  - Tinea pedis [Unknown]
  - Hordeolum [Unknown]
  - Sinusitis [Unknown]
  - Depression [Unknown]
  - Amnesia [Unknown]
  - Fractured sacrum [Unknown]
  - Rectal haemorrhage [Unknown]
  - Dysphonia [Unknown]
  - Dysuria [Unknown]
  - Muscular weakness [Unknown]
  - Oropharyngeal pain [Unknown]
  - Insomnia [Unknown]
  - Axillary pain [Unknown]
  - Chest pain [Unknown]
  - Pruritus [Unknown]
  - Arthralgia [Unknown]
  - Eye pain [Unknown]
  - Nail discolouration [Unknown]
  - Onychalgia [Unknown]
  - Nail disorder [Unknown]
